FAERS Safety Report 4624113-4 (Version None)
Quarter: 2005Q1

REPORT INFORMATION
  Report Type: 
  Country: None (occurrence: None)
  Receive Date: 20050324
  Receipt Date: 20050324
  Transmission Date: 20050727
  Serious: Yes (Death)
  Sender: FDA-Public Use
  Company Number: None

PATIENT
  Age: 41 Year
  Sex: Male

DRUGS (5)
  1. NEURONTIN [Suspect]
     Indication: PAIN
     Dosage: 4800MG DAILY, ORAL
     Route: 048
     Dates: start: 20011101, end: 20031226
  2. NEURONTIN [Suspect]
     Indication: TRIGEMINAL NEURALGIA
     Dosage: 4800MG DAILY, ORAL
     Route: 048
     Dates: start: 20011101, end: 20031226
  3. CLONAZEPAM [Concomitant]
  4. DURAGESIC-100 [Concomitant]
  5. EFFEXOR [Concomitant]

REACTIONS (2)
  - COMPLETED SUICIDE [None]
  - OVERDOSE [None]
